FAERS Safety Report 9690554 (Version 1)
Quarter: 2013Q4

REPORT INFORMATION
  Report Type: Spontaneous
  Country: BR (occurrence: None)
  Receive Date: 20131113
  Receipt Date: 20131113
  Transmission Date: 20140711
  Serious: Yes (Other)
  Sender: FDA-Public Use
  Company Number: VAL_02816_2013

PATIENT
  Age: 42 Year
  Sex: Female

DRUGS (4)
  1. METHERGINE [Suspect]
     Indication: MENSTRUAL DISORDER
     Dosage: 1 DF 1X/ 8 HOURS ORAL
     Dates: start: 2009, end: 201203
  2. METHERGINE [Suspect]
     Indication: OFF LABEL USE
     Dosage: 1 DF 1X/ 8 HOURS ORAL
     Dates: start: 2009, end: 201203
  3. MAXSULID [Suspect]
     Indication: PAIN
     Dosage: 1 DF 1X/ 8 HOURS ORAL
     Dates: start: 2009
  4. ZOLADEX [Suspect]
     Indication: RHABDOMYOMA
     Dates: start: 2009, end: 2009

REACTIONS (8)
  - Uterine pain [None]
  - Bone decalcification [None]
  - Haemorrhage [None]
  - Pain in extremity [None]
  - Headache [None]
  - Nausea [None]
  - Dizziness [None]
  - Blood pressure decreased [None]
